FAERS Safety Report 4449772-0 (Version None)
Quarter: 2004Q3

REPORT INFORMATION
  Report Type: 
  Country: None (occurrence: None)
  Receive Date: 20040802
  Receipt Date: 20040430
  Transmission Date: 20050211
  Serious: Yes (Other)
  Sender: FDA-Public Use
  Company Number: US-SHR-04-024832

PATIENT
  Sex: Female

DRUGS (1)
  1. MAGNEVIST [Suspect]
     Indication: NUCLEAR MAGNETIC RESONANCE IMAGING
     Dosage: 20 MG 1 DOSE INTRAVENOUS
     Route: 042
     Dates: start: 20040430, end: 20040430

REACTIONS (7)
  - ASTHENIA [None]
  - CHEST DISCOMFORT [None]
  - COMA [None]
  - DYSPNOEA [None]
  - LETHARGY [None]
  - PUPIL FIXED [None]
  - URTICARIA [None]
